FAERS Safety Report 9707363 (Version 6)
Quarter: 2016Q4

REPORT INFORMATION
  Report Type: Spontaneous
  Country: US (occurrence: US)
  Receive Date: 20131125
  Receipt Date: 20161102
  Transmission Date: 20170207
  Serious: Yes (Other)
  Sender: FDA-Public Use
  Company Number: US-GLAXOSMITHKLINE-A1034234A

PATIENT
  Age: 86 Year
  Sex: Male

DRUGS (4)
  1. FLOVENT DISKUS [Suspect]
     Active Substance: FLUTICASONE PROPIONATE
     Indication: DYSPNOEA
  2. FLOVENT DISKUS [Suspect]
     Active Substance: FLUTICASONE PROPIONATE
     Indication: CHRONIC OBSTRUCTIVE PULMONARY DISEASE
     Dosage: 1 PUFF(S), BID
     Route: 055
     Dates: start: 20100820
  3. PROVENTIL [Concomitant]
     Active Substance: ALBUTEROL
  4. HYDROCODONE [Concomitant]
     Active Substance: HYDROCODONE

REACTIONS (8)
  - Cardiac aneurysm [Unknown]
  - Intervertebral disc displacement [Not Recovered/Not Resolved]
  - Aortic aneurysm [Unknown]
  - Adrenal disorder [Unknown]
  - Renal neoplasm [Unknown]
  - Drug dose omission [Not Recovered/Not Resolved]
  - Renal disorder [Unknown]
  - Drug ineffective [Not Recovered/Not Resolved]

NARRATIVE: CASE EVENT DATE: 20160830
